FAERS Safety Report 9771201 (Version 1)
Quarter: 2013Q4

REPORT INFORMATION
  Report Type: Spontaneous
  Country: DK (occurrence: IT)
  Receive Date: 20131218
  Receipt Date: 20131218
  Transmission Date: 20140711
  Serious: Yes (Disabling)
  Sender: FDA-Public Use
  Company Number: IT-FRI-1000052314

PATIENT
  Age: 68 Year
  Sex: Male

DRUGS (3)
  1. CITALOPRAM [Suspect]
     Indication: DEPRESSION
     Dosage: 20 MG
     Route: 048
  2. SEROQUEL [Suspect]
     Indication: PSYCHOTIC DISORDER
     Dosage: 100 MG
     Route: 048
  3. XENAZINA [Concomitant]
     Indication: PSYCHOTIC DISORDER
     Dosage: 25 MG
     Route: 048
     Dates: start: 20121119

REACTIONS (1)
  - Facial spasm [Not Recovered/Not Resolved]
